FAERS Safety Report 4308440-6 (Version None)
Quarter: 2004Q1

REPORT INFORMATION
  Report Type: 
  Country: None (occurrence: None)
  Receive Date: 20040225
  Receipt Date: 20021231
  Transmission Date: 20041129
  Serious: Yes (Hospitalization)
  Sender: FDA-Public Use
  Company Number: WAES 0206USA01963

PATIENT
  Age: 48 Year
  Sex: Male
  Weight: 87.9978 kg

DRUGS (13)
  1. ZOCOR [Suspect]
     Indication: HYPERTRIGLYCERIDAEMIA
     Dosage: SEE IMAGE
     Route: 048
     Dates: start: 20000412, end: 20000605
  2. ZOCOR [Suspect]
     Indication: HYPERTRIGLYCERIDAEMIA
     Dosage: SEE IMAGE
     Route: 048
     Dates: start: 20000101
  3. . [Concomitant]
  4. LOPID [Suspect]
     Dosage: SEE IMAGE
     Dates: start: 20000412, end: 20000605
  5. LOPID [Suspect]
     Dosage: SEE IMAGE
     Dates: start: 20000101
  6. , [Concomitant]
  7. CELEBREX [Concomitant]
  8. LASIX [Concomitant]
  9. LEVBID [Concomitant]
  10. MICRO-K [Concomitant]
  11. PEPCID [Concomitant]
  12. SYNTHROID [Concomitant]
  13. TIAZAC [Concomitant]

REACTIONS (5)
  - FATIGUE [None]
  - HEADACHE [None]
  - HYPOTHYROIDISM [None]
  - MYALGIA [None]
  - RHABDOMYOLYSIS [None]
